FAERS Safety Report 25769741 (Version 2)
Quarter: 2025Q3

REPORT INFORMATION
  Report Type: Report from Study
  Country: US (occurrence: US)
  Receive Date: 20250907
  Receipt Date: 20250910
  Transmission Date: 20251020
  Serious: Yes (Other)
  Sender: ALEXION PHARMACEUTICALS
  Company Number: US-AstraZeneca-CH-00943642A

PATIENT
  Age: 66 Year
  Sex: Female

DRUGS (14)
  1. BUDESONIDE\FORMOTEROL\GLYCOPYRRONIUM [Suspect]
     Active Substance: BUDESONIDE\FORMOTEROL\GLYCOPYRRONIUM
     Route: 065
  2. METOPROLOL [Concomitant]
     Active Substance: METOPROLOL
     Route: 065
  3. ALBUTEROL SULFATE [Concomitant]
     Active Substance: ALBUTEROL SULFATE
     Indication: Wheezing
     Route: 065
  4. ASPIRIN [Concomitant]
     Active Substance: ASPIRIN
     Dosage: 81 MILLIGRAM, QD
     Dates: start: 20250205
  5. ATORVASTATIN [Concomitant]
     Active Substance: ATORVASTATIN
  6. BUDESONIDE [Concomitant]
     Active Substance: BUDESONIDE
  7. DIAZEPAM [Concomitant]
     Active Substance: DIAZEPAM
     Indication: Anxiety
  8. FEXOFENADINE [Concomitant]
     Active Substance: FEXOFENADINE HYDROCHLORIDE
  9. FLUTICASONE FUROATE [Concomitant]
     Active Substance: FLUTICASONE FUROATE
  10. NYSTATIN [Concomitant]
     Active Substance: NYSTATIN
     Route: 065
  11. SERTRALINE [Concomitant]
     Active Substance: SERTRALINE HYDROCHLORIDE
  12. TRAMADOL [Concomitant]
     Active Substance: TRAMADOL
     Indication: Pain
     Dosage: 50 MILLIGRAM, Q8H
     Dates: start: 20250205
  13. TYLENOL [Concomitant]
     Active Substance: ACETAMINOPHEN
     Indication: Pain
     Dosage: 500 MILLIGRAM, TID
     Dates: start: 20250205
  14. TYLENOL [Concomitant]
     Active Substance: ACETAMINOPHEN
     Indication: Pyrexia

REACTIONS (5)
  - Chronic obstructive pulmonary disease [Unknown]
  - Pulmonary fibrosis [Unknown]
  - Cerebrovascular accident [Unknown]
  - Cardiac failure chronic [Unknown]
  - Hypoxia [Unknown]
